FAERS Safety Report 9312013 (Version 1)
Quarter: 2013Q2

REPORT INFORMATION
  Report Type: Report from Study
  Country: US (occurrence: US)
  Receive Date: 20130528
  Receipt Date: 20130528
  Transmission Date: 20140414
  Serious: Yes (Death)
  Sender: FDA-Public Use
  Company Number: US-ASTELLAS-2013US005524

PATIENT
  Age: 81 Year
  Sex: Male

DRUGS (1)
  1. ERLOTINIB TABLET [Suspect]
     Indication: LUNG NEOPLASM MALIGNANT
     Dosage: 75 MG, UID/QD
     Route: 048
     Dates: start: 20111121, end: 20130418

REACTIONS (2)
  - Incorrect dose administered [Unknown]
  - Death [Fatal]
